FAERS Safety Report 6431780-1 (Version None)
Quarter: 2009Q4

REPORT INFORMATION
  Report Type: 
  Country: None (occurrence: None)
  Receive Date: 20091104
  Receipt Date: 20091029
  Transmission Date: 20100525
  Serious: Yes (Death)
  Sender: FDA-Public Use
  Company Number: 2009JP006567

PATIENT
  Sex: Female
  Weight: 52 kg

DRUGS (9)
  1. VESICARE [Suspect]
     Indication: HYPERTONIC BLADDER
     Dosage: 5 MG, UID/QD, ORAL
     Route: 048
     Dates: start: 20070523, end: 20071225
  2. MICARDIS [Concomitant]
  3. LEXOTAN (BROMAZEPEM) [Concomitant]
  4. RAMITALATE [Concomitant]
  5. ACCOLATE [Concomitant]
  6. NEUROTROPIN (THIAMINE HYDROCHLORIDE) [Concomitant]
  7. NONNERV (ETIZOLAM) [Concomitant]
  8. MIYA BM (CLOSTRIDIUM BUTYRICUM) [Concomitant]
  9. LOPERANIL TAIYO (LOPERAMIDE HYDROCHLORIDE) [Concomitant]

REACTIONS (1)
  - ENTEROCOLITIS [None]
